FAERS Safety Report 24842726 (Version 3)
Quarter: 2025Q1

REPORT INFORMATION
  Report Type: Report from Study
  Country: US (occurrence: US)
  Receive Date: 20250115
  Receipt Date: 20250304
  Transmission Date: 20250408
  Serious: Yes (Other)
  Sender: UCB
  Company Number: US-UCBSA-2024064629

PATIENT
  Age: 28 Year
  Sex: Male
  Weight: 172 kg

DRUGS (2)
  1. FINTEPLA [Suspect]
     Active Substance: FENFLURAMINE
     Indication: Lennox-Gastaut syndrome
     Dosage: 5.9 MILLILITER, 2X/DAY (BID)
     Route: 048
     Dates: start: 20240830
  2. FINTEPLA [Suspect]
     Active Substance: FENFLURAMINE
     Dosage: 5.9 MILLILITER, 2X/DAY (BID)
     Route: 048

REACTIONS (3)
  - Seizure [Recovering/Resolving]
  - Pulmonary valve incompetence [Not Recovered/Not Resolved]
  - Atonic seizures [Recovering/Resolving]

NARRATIVE: CASE EVENT DATE: 20241206
